FAERS Safety Report 23676209 (Version 2)
Quarter: 2024Q2

REPORT INFORMATION
  Report Type: Report from Study
  Country: US (occurrence: US)
  Receive Date: 20240327
  Receipt Date: 20240419
  Transmission Date: 20240716
  Serious: Yes (Hospitalization, Other)
  Sender: FDA-Public Use
  Company Number: US-ABBVIE-5691115

PATIENT
  Sex: Female
  Weight: 68 kg

DRUGS (5)
  1. HUMIRA [Suspect]
     Active Substance: ADALIMUMAB
     Indication: Crohn^s disease
     Dosage: FORM STRENGTH: 40 MILLIGRAM
     Route: 058
     Dates: start: 2018, end: 2020
  2. HUMIRA [Suspect]
     Active Substance: ADALIMUMAB
     Dosage: FORM STRENGTH: 40 MILLIGRAM
     Route: 058
     Dates: start: 20210827
  3. FOLIC ACID [Concomitant]
     Active Substance: FOLIC ACID
     Indication: Product used for unknown indication
  4. CALCIUM [Concomitant]
     Active Substance: CALCIUM
     Indication: Product used for unknown indication
  5. VITAMIN D [Concomitant]
     Active Substance: VITAMIN D NOS
     Indication: Product used for unknown indication

REACTIONS (14)
  - Cerebral haemorrhage [Recovered/Resolved]
  - Pain [Recovered/Resolved]
  - Gait disturbance [Unknown]
  - Hypertension [Recovering/Resolving]
  - Appendicitis [Recovered/Resolved]
  - Memory impairment [Not Recovered/Not Resolved]
  - Colon cancer [Recovered/Resolved]
  - Decreased appetite [Recovered/Resolved]
  - Aphasia [Not Recovered/Not Resolved]
  - Crohn^s disease [Recovered/Resolved]
  - Large intestine infection [Recovered/Resolved]
  - Hypoaesthesia [Not Recovered/Not Resolved]
  - Arthralgia [Unknown]
  - Impaired healing [Unknown]

NARRATIVE: CASE EVENT DATE: 20200101
